FAERS Safety Report 10382743 (Version 1)
Quarter: 2014Q3

REPORT INFORMATION
  Report Type: Spontaneous
  Country: US (occurrence: US)
  Receive Date: 20140813
  Receipt Date: 20140813
  Transmission Date: 20150326
  Serious: Yes (Disabling, Other)
  Sender: FDA-Public Use
  Company Number: US-ABBVIE-14P-163-1270591-00

PATIENT
  Age: 56 Year
  Sex: Male

DRUGS (2)
  1. DEPAKOTE ER [Suspect]
     Active Substance: DIVALPROEX SODIUM
     Indication: CONVULSION
  2. GENERIC DEPAKOTE ER [Suspect]
     Active Substance: DIVALPROEX SODIUM
     Indication: CONVULSION

REACTIONS (3)
  - Rheumatoid arthritis [Not Recovered/Not Resolved]
  - Convulsion [Unknown]
  - Product substitution issue [None]
